FAERS Safety Report 9215698 (Version 1)
Quarter: 2013Q2

REPORT INFORMATION
  Report Type: Spontaneous
  Country: FR (occurrence: None)
  Receive Date: 20130404
  Receipt Date: 20130404
  Transmission Date: 20140414
  Serious: Yes (Death)
  Sender: FDA-Public Use
  Company Number: SYM-2013-02265

PATIENT
  Sex: 0

DRUGS (3)
  1. FLUOROURACIL [Suspect]
     Indication: OESOPHAGEAL CARCINOMA
  2. THERAPEUTIC RADIOPHARMACEUTICALS (THERAPEUTIC RADIOPHARMACEUTICALS) [Suspect]
     Indication: OESOPHAGEAL CARCINOMA
     Dosage: 50 GY
  3. CISPLATIN (CISPLATIN) (5 MILLIGRAM) (CISPLATIN) [Suspect]
     Indication: OESOPHAGEAL CARCINOMA
     Dosage: 75 MG/M2, EVERY CYCLE

REACTIONS (1)
  - Toxicity to various agents [None]
